FAERS Safety Report 4474237-X (Version None)
Quarter: 2004Q4

REPORT INFORMATION
  Report Type: 
  Country: None (occurrence: None)
  Receive Date: 20041008
  Receipt Date: 20040924
  Transmission Date: 20050328
  Serious: Yes (Hospitalization)
  Sender: FDA-Public Use
  Company Number: K200401471

PATIENT
  Age: 72 Year
  Sex: Male

DRUGS (6)
  1. ALTACE [Suspect]
     Dosage: 2.5 MG QD, ORAL
     Route: 048
  2. TOPROL-XL [Suspect]
     Dosage: 25 MG, QD, ORAL
     Route: 048
  3. CRESTOR [Suspect]
     Dosage: 10 MG, QD, ORAL
     Route: 048
  4. ATORVASTATIN (ATORVASTATIN) 10 MG [Suspect]
     Dosage: 10 MG, QD, ORAL
     Route: 048
  5. GLUCOSAMINE (GLUCOSAMINE) [Concomitant]
  6. QUININE SULFATE (QUININE SUFATE) [Concomitant]

REACTIONS (4)
  - BRADYCARDIA [None]
  - CHEILITIS [None]
  - DIZZINESS [None]
  - VERTIGO [None]
